FAERS Safety Report 16232784 (Version 1)
Quarter: 2019Q2

REPORT INFORMATION
  Report Type: Spontaneous
  Country: US (occurrence: US)
  Receive Date: 20190423
  Receipt Date: 20190423
  Transmission Date: 20190711
  Serious: Yes (Hospitalization)
  Sender: FDA-Public Use
  Company Number: None

PATIENT
  Age: 74 Year
  Sex: Female
  Weight: 100.8 kg

DRUGS (22)
  1. IBRANCE [Concomitant]
     Active Substance: PALBOCICLIB
  2. LETROZOLE. [Concomitant]
     Active Substance: LETROZOLE
  3. ADIPRA [Concomitant]
  4. ASPIRIN. [Concomitant]
     Active Substance: ASPIRIN
  5. HYDROXYZINE [Concomitant]
     Active Substance: HYDROXYZINE HYDROCHLORIDE
  6. TRICOR [Concomitant]
     Active Substance: FENOFIBRATE
  7. ACETAMINOPHEN. [Concomitant]
     Active Substance: ACETAMINOPHEN
  8. METFORMIN [Concomitant]
     Active Substance: METFORMIN HYDROCHLORIDE
  9. ARMOUR THYROID [Concomitant]
     Active Substance: THYROID, PORCINE
  10. VITAMIN D3 [Concomitant]
     Active Substance: CHOLECALCIFEROL
  11. OMEPRAZOLE. [Concomitant]
     Active Substance: OMEPRAZOLE
  12. ROPINOROLE [Concomitant]
     Active Substance: ROPINIROLE
  13. IBRANCE [Suspect]
     Active Substance: PALBOCICLIB
     Indication: BREAST CANCER STAGE IV
     Route: 048
     Dates: start: 20180720, end: 20190422
  14. VALSARTAN. [Concomitant]
     Active Substance: VALSARTAN
  15. CARVEDILOL. [Concomitant]
     Active Substance: CARVEDILOL
  16. FLECTOR [Concomitant]
     Active Substance: DICLOFENAC EPOLAMINE
  17. NORCO [Concomitant]
     Active Substance: ACETAMINOPHEN\HYDROCODONE BITARTRATE
  18. CYMBALTA [Concomitant]
     Active Substance: DULOXETINE HYDROCHLORIDE
  19. ALKA-SELTZER [Concomitant]
     Active Substance: ANHYDROUS CITRIC ACID\ASPIRIN\SODIUM BICARBONATE
  20. LANTUS [Concomitant]
     Active Substance: INSULIN GLARGINE
  21. MAGNESIUM [Concomitant]
     Active Substance: MAGNESIUM
  22. BACLOFEN. [Concomitant]
     Active Substance: BACLOFEN

REACTIONS (1)
  - Cerebrovascular accident [None]

NARRATIVE: CASE EVENT DATE: 20190423
